FAERS Safety Report 9178139 (Version 1)
Quarter: 2013Q1

REPORT INFORMATION
  Report Type: Spontaneous
  Country: US (occurrence: US)
  Receive Date: 20130321
  Receipt Date: 20130321
  Transmission Date: 20140127
  Serious: Yes (Other)
  Sender: FDA-Public Use
  Company Number: US-ELI_LILLY_AND_COMPANY-US201303004604

PATIENT
  Sex: Male

DRUGS (1)
  1. EFFIENT [Suspect]
     Route: 048

REACTIONS (1)
  - Thrombosis in device [Unknown]
